FAERS Safety Report 5976653-3 (Version None)
Quarter: 2008Q4

REPORT INFORMATION
  Report Type: 
  Country: None (occurrence: None)
  Receive Date: 20081201
  Receipt Date: 20081201
  Transmission Date: 20090506
  Serious: No
  Sender: FDA-Public Use
  Company Number: None

PATIENT
  Age: 67 Year
  Sex: Female
  Weight: 63.9572 kg

DRUGS (1)
  1. BONIVA [Suspect]
     Indication: OSTEOPOROSIS
     Dosage: Q 3 MOS IV
     Route: 042
     Dates: start: 20080903

REACTIONS (9)
  - BONE PAIN [None]
  - DIARRHOEA [None]
  - DYSGEUSIA [None]
  - HAEMATOCHEZIA [None]
  - MUSCLE SPASMS [None]
  - NAUSEA [None]
  - PAIN IN JAW [None]
  - TOOTHACHE [None]
  - VOMITING [None]
